FAERS Safety Report 4557097-8 (Version None)
Quarter: 2005Q1

REPORT INFORMATION
  Report Type: 
  Country: None (occurrence: None)
  Receive Date: 20050118
  Receipt Date: 20050103
  Transmission Date: 20050727
  Serious: Yes (Hospitalization)
  Sender: FDA-Public Use
  Company Number: 2005CG00005

PATIENT
  Age: 71 Year
  Sex: Male

DRUGS (3)
  1. XYLOCAINE [Suspect]
     Indication: LOCAL ANAESTHESIA
     Dates: start: 19960910, end: 19960910
  2. XYLOCAINE TOPICAL FILM [Suspect]
     Indication: LOCAL ANAESTHESIA
     Dates: start: 19960910, end: 19960910
  3. TRASITENSINE [Concomitant]

REACTIONS (5)
  - ANAESTHETIC COMPLICATION [None]
  - BRADYCARDIA [None]
  - CIRCULATORY COLLAPSE [None]
  - MALAISE [None]
  - URTICARIA [None]
